FAERS Safety Report 8462306-9 (Version None)
Quarter: 2012Q2

REPORT INFORMATION
  Report Type: 
  Country: None (occurrence: None)
  Receive Date: 20120625
  Receipt Date: 20120618
  Transmission Date: 20120825
  Serious: Yes (Other)
  Sender: FDA-Public Use
  Company Number: GB-UCBSA-057816

PATIENT
  Sex: Male

DRUGS (2)
  1. CIMZIA [Suspect]
     Dosage: 400 MG
     Route: 058
     Dates: start: 20120430, end: 20120501
  2. ANTIBIOTICS [Concomitant]
     Indication: LOCALISED INFECTION
     Dates: start: 20120101

REACTIONS (2)
  - LOCALISED INFECTION [None]
  - HERPES ZOSTER [None]
